FAERS Safety Report 24420488 (Version 2)
Quarter: 2024Q4

REPORT INFORMATION
  Report Type: Report from Study
  Country: US (occurrence: US)
  Receive Date: 20241010
  Receipt Date: 20241018
  Transmission Date: 20250114
  Serious: No
  Sender: ROCHE
  Company Number: US-ROCHE-3536789

PATIENT
  Age: 47 Year
  Sex: Male

DRUGS (4)
  1. CATHFLO ACTIVASE [Suspect]
     Active Substance: ALTEPLASE
     Indication: Thrombosis in device
     Route: 065
  2. CATHFLO ACTIVASE [Suspect]
     Active Substance: ALTEPLASE
     Indication: Metastases to bone
  3. ALECENSA [Suspect]
     Active Substance: ALECTINIB HYDROCHLORIDE
     Indication: Metastases to bone
     Dosage: TAKE 4 CAPSULE(S) BY MOUTH IN THE MORNING AND AT BEDTIME
     Route: 048
     Dates: start: 20240319
  4. ALECENSA [Suspect]
     Active Substance: ALECTINIB HYDROCHLORIDE
     Indication: Thrombosis in device

REACTIONS (2)
  - Off label use [Unknown]
  - No adverse event [Unknown]
